FAERS Safety Report 5019067-5 (Version None)
Quarter: 2006Q2

REPORT INFORMATION
  Report Type: 
  Country: None (occurrence: None)
  Receive Date: 20060606
  Receipt Date: 20060526
  Transmission Date: 20061013
  Serious: Yes (Hospitalization)
  Sender: FDA-Public Use
  Company Number: US-BRISTOL-MYERS SQUIBB COMPANY-13392931

PATIENT
  Sex: Female

DRUGS (11)
  1. CDDP [Suspect]
     Indication: NON-SMALL CELL LUNG CANCER
     Route: 041
     Dates: start: 20060329, end: 20060329
  2. TS-1 [Suspect]
     Indication: NON-SMALL CELL LUNG CANCER
     Dates: start: 20060412, end: 20060412
  3. ASPIRIN [Concomitant]
     Indication: ANTICOAGULANT THERAPY
     Route: 048
  4. CIPRO [Concomitant]
     Indication: URINARY TRACT INFECTION
     Route: 048
  5. LOVENOX [Concomitant]
     Indication: PULMONARY EMBOLISM
     Route: 058
     Dates: start: 20060425
  6. LOVENOX [Concomitant]
     Indication: DEEP VEIN THROMBOSIS
     Route: 058
     Dates: start: 20060425
  7. HEPARIN [Concomitant]
     Indication: PULMONARY EMBOLISM
     Route: 042
     Dates: start: 20060419, end: 20060425
  8. HEPARIN [Concomitant]
     Indication: DEEP VEIN THROMBOSIS
     Route: 042
     Dates: start: 20060419, end: 20060425
  9. HEPARIN [Concomitant]
     Indication: ANTICOAGULANT THERAPY
     Route: 042
     Dates: start: 20060419, end: 20060425
  10. COUMADIN [Concomitant]
     Indication: PULMONARY EMBOLISM
     Route: 048
     Dates: start: 20060423
  11. COUMADIN [Concomitant]
     Indication: DEEP VEIN THROMBOSIS
     Route: 048
     Dates: start: 20060423

REACTIONS (1)
  - ANAEMIA [None]
